FAERS Safety Report 12718672 (Version 3)
Quarter: 2016Q4

REPORT INFORMATION
  Report Type: Spontaneous
  Country: US (occurrence: US)
  Receive Date: 20160906
  Receipt Date: 20161215
  Transmission Date: 20170207
  Serious: Yes (Hospitalization, Other)
  Sender: FDA-Public Use
  Company Number: US-GLAXOSMITHKLINE-US2016125153

PATIENT
  Age: 64 Year
  Sex: Female

DRUGS (9)
  1. REQUIP [Suspect]
     Active Substance: ROPINIROLE HYDROCHLORIDE
     Dosage: 3 MG, U
     Dates: start: 201601
  2. ADVAIR HFA [Concomitant]
     Active Substance: FLUTICASONE PROPIONATE\SALMETEROL XINAFOATE
  3. REQUIP [Suspect]
     Active Substance: ROPINIROLE HYDROCHLORIDE
     Indication: RESTLESS LEGS SYNDROME
     Dosage: 1.5 MG, U
     Route: 048
     Dates: start: 2009
  4. ROPINIROLE HYDROCHLORIDE. [Suspect]
     Active Substance: ROPINIROLE HYDROCHLORIDE
     Indication: RESTLESS LEGS SYNDROME
     Dosage: UNK UNK, U
  5. LEVOTHYROXIN [Concomitant]
     Active Substance: LEVOTHYROXINE
  6. NEUPRO [Suspect]
     Active Substance: ROTIGOTINE
     Indication: RESTLESS LEGS SYNDROME
     Dosage: UNK, U
     Dates: start: 201606
  7. PRAVASTATIN. [Concomitant]
     Active Substance: PRAVASTATIN
  8. SPIRIVA [Concomitant]
     Active Substance: TIOTROPIUM BROMIDE MONOHYDRATE
  9. REQUIP [Suspect]
     Active Substance: ROPINIROLE HYDROCHLORIDE
     Dosage: .75 MG, U

REACTIONS (17)
  - Pleural effusion [Unknown]
  - Chronic obstructive pulmonary disease [Not Recovered/Not Resolved]
  - Lung infiltration [Unknown]
  - Lung disorder [Unknown]
  - Oxygen saturation decreased [Recovering/Resolving]
  - Pleural thickening [Unknown]
  - Thyroid disorder [Unknown]
  - Sinus congestion [Unknown]
  - Dysphagia [Unknown]
  - Lung infection [Unknown]
  - Bronchospasm [Unknown]
  - Dyspnoea [Recovered/Resolved]
  - Respiratory tract infection [Unknown]
  - Bronchitis [Recovered/Resolved]
  - Cough [Unknown]
  - Blood cholesterol increased [Unknown]
  - Insomnia [Unknown]

NARRATIVE: CASE EVENT DATE: 2013
